FAERS Safety Report 19657022 (Version 1)
Quarter: 2021Q3

REPORT INFORMATION
  Report Type: Spontaneous
  Country: US (occurrence: US)
  Receive Date: 20210804
  Receipt Date: 20210804
  Transmission Date: 20211014
  Serious: Yes (Hospitalization)
  Sender: FDA-Public Use
  Company Number: None

PATIENT
  Sex: Male
  Weight: 120.2 kg

DRUGS (8)
  1. DOXORUBINE HYDROCHLORIDE [Concomitant]
  2. CYCLOPHOSPHAMIDE. [Suspect]
     Active Substance: CYCLOPHOSPHAMIDE
  3. VINCRISTINE SULFATE. [Concomitant]
     Active Substance: VINCRISTINE SULFATE
  4. CYTARABINE. [Concomitant]
     Active Substance: CYTARABINE
  5. THIOGUARINE (6?TG) [Concomitant]
     Active Substance: THIOGUANINE ANHYDROUS
  6. METHOTREXATE. [Concomitant]
     Active Substance: METHOTREXATE
  7. RITUXIMAB (MOAB C2B8 ANTI CD20, CHIMERIC) [Concomitant]
     Active Substance: RITUXIMAB
  8. ONCASPAR [Concomitant]
     Active Substance: PEGASPARGASE

REACTIONS (3)
  - Rectal abscess [None]
  - Febrile neutropenia [None]
  - Cholecystitis acute [None]

NARRATIVE: CASE EVENT DATE: 20210720
